FAERS Safety Report 26215964 (Version 1)
Quarter: 2025Q4

REPORT INFORMATION
  Report Type: Spontaneous
  Country: US (occurrence: US)
  Receive Date: 20251231
  Receipt Date: 20251231
  Transmission Date: 20260118
  Serious: No
  Sender: LEO PHARM
  Company Number: US-LEO Pharma-385274

PATIENT
  Age: 31 Year
  Sex: Female

DRUGS (1)
  1. ADBRY [Suspect]
     Active Substance: TRALOKINUMAB-LDRM
     Indication: Dermatitis atopic
     Dosage: DISCONTINUED ON AN UNKNOWN DATE
     Route: 058
     Dates: start: 202501

REACTIONS (3)
  - Hypersensitivity [Unknown]
  - Injection site pruritus [Unknown]
  - Injection site erythema [Unknown]
